FAERS Safety Report 9983487 (Version 3)
Quarter: 2014Q3

REPORT INFORMATION
  Report Type: Report from Study
  Country: US (occurrence: US)
  Receive Date: 20140307
  Receipt Date: 20140707
  Transmission Date: 20150326
  Serious: Yes (Other)
  Sender: FDA-Public Use
  Company Number: US-SA-2014SA029281

PATIENT
  Age: 66 Year
  Sex: Female

DRUGS (6)
  1. APIDRA [Suspect]
     Active Substance: INSULIN GLULISINE
     Indication: TYPE 2 DIABETES MELLITUS
     Dosage: DAILY DOSE: 180 TO 225 UNITS
     Route: 058
  2. VICTOZA [Suspect]
     Active Substance: LIRAGLUTIDE
     Route: 065
  3. HUMALOG [Suspect]
     Active Substance: INSULIN LISPRO
     Route: 065
  4. LANTUS [Suspect]
     Active Substance: INSULIN GLARGINE
     Indication: TYPE 2 DIABETES MELLITUS
     Dosage: DOSE:50 UNIT(S)
     Route: 058
  5. NOVOLOG [Suspect]
     Active Substance: INSULIN ASPART
     Route: 065
  6. LANTUS [Suspect]
     Active Substance: INSULIN GLARGINE
     Indication: TYPE 2 DIABETES MELLITUS
     Dosage: DOSE:20 UNIT(S)
     Route: 065
     Dates: start: 2006

REACTIONS (8)
  - Drug administration error [Unknown]
  - Drug dose omission [Unknown]
  - Blood glucose abnormal [Not Recovered/Not Resolved]
  - Neuropathy peripheral [Unknown]
  - Impaired gastric emptying [Unknown]
  - Diabetic foot [Unknown]
  - Pancreatitis chronic [Unknown]
  - Abdominal pain upper [Unknown]
